FAERS Safety Report 6775342-5 (Version None)
Quarter: 2010Q2

REPORT INFORMATION
  Report Type: 
  Country: None (occurrence: None)
  Receive Date: 20100617
  Receipt Date: 20100614
  Transmission Date: 20101027
  Serious: Yes (Death)
  Sender: FDA-Public Use
  Company Number: US-PFIZER INC-2010051316

PATIENT
  Age: 14 Year
  Sex: Female
  Weight: 29.5 kg

DRUGS (1)
  1. GENOTROPIN [Suspect]
     Indication: RENAL FAILURE CHRONIC
     Dosage: UNK
     Route: 058

REACTIONS (1)
  - DEATH [None]
